FAERS Safety Report 17699340 (Version 5)
Quarter: 2020Q2

REPORT INFORMATION
  Report Type: Spontaneous
  Country: US (occurrence: US)
  Receive Date: 20200423
  Receipt Date: 20200511
  Transmission Date: 20200714
  Serious: Yes (Death, Life-Threatening, Hospitalization, Other)
  Sender: FDA-Public Use
  Company Number: US-UNITED THERAPEUTICS-UNT-2020-006036

PATIENT
  Age: 17 Year
  Sex: Female
  Weight: 34.88 kg

DRUGS (4)
  1. TYVASO [Suspect]
     Active Substance: TREPROSTINIL
     Indication: PULMONARY ARTERIAL HYPERTENSION
     Dosage: UNK
     Dates: start: 20180312
  2. AMBRISENTAN [Concomitant]
     Active Substance: AMBRISENTAN
     Indication: PRODUCT USED FOR UNKNOWN INDICATION
     Dosage: UNK
     Route: 065
  3. TYVASO [Suspect]
     Active Substance: TREPROSTINIL
     Dosage: 18-54 ?G, QID
  4. TYVASO [Suspect]
     Active Substance: TREPROSTINIL
     Dosage: 54 ?G, (SIX TIME PER DAY)

REACTIONS (7)
  - Unresponsive to stimuli [Unknown]
  - Syncope [Unknown]
  - Eye movement disorder [Unknown]
  - Off label use [Unknown]
  - Pneumonia [Unknown]
  - Disease progression [Fatal]
  - Dyskinesia [Unknown]

NARRATIVE: CASE EVENT DATE: 20200418
